FAERS Safety Report 4926533-7 (Version None)
Quarter: 2006Q1

REPORT INFORMATION
  Report Type: 
  Country: None (occurrence: None)
  Receive Date: 20060228
  Receipt Date: 20050427
  Transmission Date: 20060701
  Serious: No
  Sender: FDA-Public Use
  Company Number: US-GLAXOSMITHKLINE-A0556012A

PATIENT
  Age: 52 Year
  Sex: Female
  Weight: 45.5 kg

DRUGS (5)
  1. LAMICTAL [Suspect]
     Indication: BIPOLAR DISORDER
     Dosage: 100MG UNKNOWN
     Route: 048
     Dates: start: 20050301
  2. SYNTHROID [Concomitant]
  3. ESTRACE [Concomitant]
  4. VITAMINS [Concomitant]
     Route: 065
  5. DETROL [Concomitant]

REACTIONS (6)
  - HEADACHE [None]
  - HEPATOMEGALY [None]
  - LIVER TENDERNESS [None]
  - LYMPHADENOPATHY [None]
  - NAUSEA [None]
  - PYREXIA [None]
